FAERS Safety Report 18233870 (Version 1)
Quarter: 2020Q3

REPORT INFORMATION
  Report Type: Spontaneous
  Country: US (occurrence: US)
  Receive Date: 20200904
  Receipt Date: 20200904
  Transmission Date: 20201103
  Serious: Yes (Disabling, Other)
  Sender: FDA-Public Use
  Company Number: US-PURDUE-USA-2020-0164565

PATIENT

DRUGS (3)
  1. VICODIN [Suspect]
     Active Substance: ACETAMINOPHEN\HYDROCODONE BITARTRATE
     Indication: PRODUCT USED FOR UNKNOWN INDICATION
     Dosage: UNK
     Route: 048
  2. OXYCONTIN [Suspect]
     Active Substance: OXYCODONE HYDROCHLORIDE
     Indication: PRODUCT USED FOR UNKNOWN INDICATION
     Dosage: UNK
     Route: 048
  3. OXYCODONE HCL CR TABLETS (SIMILAR TO NDA 22?272) [Suspect]
     Active Substance: OXYCODONE HYDROCHLORIDE
     Indication: PRODUCT USED FOR UNKNOWN INDICATION
     Dosage: UNK
     Route: 048

REACTIONS (16)
  - Disability [Unknown]
  - Eating disorder [Unknown]
  - Suicidal ideation [Unknown]
  - Alcoholism [Unknown]
  - Sleep apnoea syndrome [Unknown]
  - Depression [Unknown]
  - Infection [Unknown]
  - Stress [Unknown]
  - Asthenia [Unknown]
  - Delirium [Unknown]
  - Drug dependence [Unknown]
  - Thinking abnormal [Unknown]
  - Insomnia [Unknown]
  - Migraine [Unknown]
  - Renal impairment [Unknown]
  - Delusional disorder, unspecified type [Unknown]
